FAERS Safety Report 7145873-7 (Version None)
Quarter: 2010Q4

REPORT INFORMATION
  Report Type: 
  Country: None (occurrence: None)
  Receive Date: 20101208
  Receipt Date: 20101201
  Transmission Date: 20110411
  Serious: Yes (Other)
  Sender: FDA-Public Use
  Company Number: B0687245A

PATIENT
  Age: 3 Year
  Sex: Female

DRUGS (3)
  1. CLAVAMOX [Suspect]
     Indication: UPPER RESPIRATORY TRACT INFECTION
     Dosage: .505G PER DAY
     Route: 048
  2. MUCODYNE [Concomitant]
     Route: 048
  3. CELTECT [Concomitant]
     Route: 048

REACTIONS (1)
  - ERYTHEMA MULTIFORME [None]
